FAERS Safety Report 4364678-3 (Version None)
Quarter: 2004Q2

REPORT INFORMATION
  Report Type: 
  Country: None (occurrence: None)
  Receive Date: 20040526
  Receipt Date: 20040216
  Transmission Date: 20050107
  Serious: No
  Sender: FDA-Public Use
  Company Number: US-GLAXOSMITHKLINE-A0498359A

PATIENT
  Age: 3 Year
  Sex: Male

DRUGS (22)
  1. FLOLAN [Suspect]
     Route: 042
     Dates: start: 20040207
  2. INSULIN DRIP [Concomitant]
  3. MORPHINE [Concomitant]
  4. VECURONIUM BROMIDE [Concomitant]
  5. MILRINONE [Concomitant]
  6. DOPAMINE HCL [Concomitant]
  7. LASIX [Concomitant]
  8. VERSED [Concomitant]
  9. FENTANYL [Concomitant]
  10. METHYLPREDNISOLONE [Concomitant]
  11. PEPCID [Concomitant]
  12. CEFEPIME [Concomitant]
  13. VANCOMYCIN [Concomitant]
  14. DIGOXIN [Concomitant]
  15. DOCUSATE [Concomitant]
  16. MILK OF MAGNESIA TAB [Concomitant]
  17. ASPIRIN [Concomitant]
  18. IBUPROFEN [Concomitant]
  19. TYLENOL [Concomitant]
  20. DULCOLAX [Concomitant]
  21. FLOVENT [Concomitant]
  22. VIAGRA [Concomitant]
     Indication: PULMONARY HYPERTENSION

REACTIONS (4)
  - FEELING JITTERY [None]
  - FLUSHING [None]
  - HYPERHIDROSIS [None]
  - PAIN [None]
